FAERS Safety Report 8980284 (Version 1)
Quarter: 2012Q4

REPORT INFORMATION
  Report Type: 
  Country: US (occurrence: US)
  Receive Date: 20121221
  Receipt Date: 20121221
  Transmission Date: 20130627
  Serious: No
  Sender: FDA-Public Use
  Company Number: US-009507513-1212USA007514

PATIENT
  Sex: Female

DRUGS (3)
  1. FOSAMAX [Suspect]
     Dosage: once weekly tablet of an unspecified dose
     Route: 048
     Dates: start: 201009, end: 201010
  2. ANALGESIC (UNSPECIFIED) [Concomitant]
     Dosage: UNK
  3. PREDNISONE [Concomitant]
     Dosage: UNK

REACTIONS (8)
  - Decreased appetite [Recovered/Resolved]
  - Oesophageal discomfort [Recovered/Resolved]
  - Abdominal discomfort [Recovered/Resolved]
  - Abdominal pain [Recovered/Resolved]
  - Nausea [Recovered/Resolved]
  - Gastrooesophageal reflux disease [Unknown]
  - Oesophageal injury [Unknown]
  - Palpitations [Unknown]
